FAERS Safety Report 25335269 (Version 3)
Quarter: 2025Q3

REPORT INFORMATION
  Report Type: Spontaneous
  Country: EU (occurrence: EU)
  Receive Date: 20250520
  Receipt Date: 20250930
  Transmission Date: 20251020
  Serious: Yes (Hospitalization)
  Sender: NOVARTIS
  Company Number: EU-002147023-NVSC2025DE079500

PATIENT
  Age: 60 Year
  Sex: Female

DRUGS (1)
  1. KESIMPTA [Suspect]
     Active Substance: OFATUMUMAB
     Indication: Multiple sclerosis
     Dosage: 20 MG, QMO
     Route: 065
     Dates: start: 202502

REACTIONS (7)
  - Herpes zoster [Recovered/Resolved]
  - Meningitis [Recovered/Resolved]
  - Viral infection [Recovered/Resolved]
  - Nasopharyngitis [Recovered/Resolved]
  - B-lymphocyte count decreased [Unknown]
  - CD19 lymphocytes decreased [Unknown]
  - General physical health deterioration [Recovered/Resolved]

NARRATIVE: CASE EVENT DATE: 20250401
